FAERS Safety Report 9698923 (Version 1)
Quarter: 2013Q4

REPORT INFORMATION
  Report Type: Spontaneous
  Country: US (occurrence: US)
  Receive Date: 20131120
  Receipt Date: 20131120
  Transmission Date: 20140711
  Serious: Yes (Death, Other)
  Sender: FDA-Public Use
  Company Number: US-ABBVIE-13P-163-1170019-00

PATIENT
  Sex: Female

DRUGS (16)
  1. HUMIRA [Suspect]
     Indication: PRODUCT USED FOR UNKNOWN INDICATION
  2. ENBREL [Suspect]
     Indication: RHEUMATOID ARTHRITIS
  3. XELJANZ [Suspect]
     Indication: RHEUMATOID ARTHRITIS
     Route: 048
     Dates: start: 20130429
  4. REMICADE [Suspect]
     Indication: PRODUCT USED FOR UNKNOWN INDICATION
  5. ORENCIA [Suspect]
     Indication: PRODUCT USED FOR UNKNOWN INDICATION
  6. RITUXAN [Suspect]
     Indication: PRODUCT USED FOR UNKNOWN INDICATION
  7. NSAID^S [Suspect]
     Indication: PRODUCT USED FOR UNKNOWN INDICATION
  8. ACTEMRA [Suspect]
     Indication: PRODUCT USED FOR UNKNOWN INDICATION
  9. PLAQUENIL [Concomitant]
     Indication: PRODUCT USED FOR UNKNOWN INDICATION
  10. PREDNISONE [Concomitant]
     Indication: PRODUCT USED FOR UNKNOWN INDICATION
  11. FLEXERIL [Concomitant]
     Indication: PRODUCT USED FOR UNKNOWN INDICATION
  12. IMURAN [Concomitant]
     Indication: PRODUCT USED FOR UNKNOWN INDICATION
  13. XARELTO [Concomitant]
     Indication: PRODUCT USED FOR UNKNOWN INDICATION
  14. REVATIO [Concomitant]
     Indication: PRODUCT USED FOR UNKNOWN INDICATION
  15. LASIX [Concomitant]
     Indication: PRODUCT USED FOR UNKNOWN INDICATION
  16. COUMADIN [Concomitant]
     Indication: PRODUCT USED FOR UNKNOWN INDICATION

REACTIONS (39)
  - Vulval cancer [Fatal]
  - Pulmonary hypertension [Fatal]
  - Atrial fibrillation [Fatal]
  - Renal failure chronic [Fatal]
  - Wheelchair user [Fatal]
  - Tendon rupture [Fatal]
  - Knee arthroplasty [Fatal]
  - Ankle operation [Fatal]
  - Shoulder deformity [Fatal]
  - Elbow deformity [Fatal]
  - Wrist deformity [Fatal]
  - Joint contracture [Fatal]
  - Arthralgia [Fatal]
  - Pain [Fatal]
  - Red blood cell sedimentation rate increased [Fatal]
  - C-reactive protein increased [Fatal]
  - Musculoskeletal pain [Fatal]
  - Oedema peripheral [Fatal]
  - Myalgia [Fatal]
  - Limb deformity [Fatal]
  - Dry mouth [Fatal]
  - Dysphoria [Fatal]
  - Contusion [Fatal]
  - Osteoporosis [Fatal]
  - Drug intolerance [Fatal]
  - Adverse drug reaction [Fatal]
  - Pain in extremity [Fatal]
  - Weight bearing difficulty [Fatal]
  - Dry skin [Fatal]
  - Hypersensitivity [Fatal]
  - Productive cough [Fatal]
  - Arthropathy [Fatal]
  - Joint range of motion decreased [Fatal]
  - Joint laxity [Fatal]
  - Oedema peripheral [Fatal]
  - Osteoarthritis [Fatal]
  - Obesity [Fatal]
  - Rheumatoid nodule [Fatal]
  - Osteoarthritis [Fatal]
